FAERS Safety Report 5313816-4 (Version None)
Quarter: 2007Q2

REPORT INFORMATION
  Report Type: 
  Country: None (occurrence: None)
  Receive Date: 20070501
  Receipt Date: 20070424
  Transmission Date: 20071010
  Serious: Yes (Hospitalization)
  Sender: FDA-Public Use
  Company Number: PHHO2007DK05574

PATIENT
  Age: 62 Year
  Sex: Female

DRUGS (2)
  1. CERTICAN [Suspect]
     Route: 048
  2. CYCLOSPORINE [Suspect]
     Indication: HEART AND LUNG TRANSPLANT

REACTIONS (1)
  - BURNING SENSATION [None]
